FAERS Safety Report 4544827-4 (Version None)
Quarter: 2005Q1

REPORT INFORMATION
  Report Type: 
  Country: None (occurrence: None)
  Receive Date: 20050104
  Receipt Date: 20041221
  Transmission Date: 20050727
  Serious: No
  Sender: FDA-Public Use
  Company Number: 2004SE06999

PATIENT
  Age: 26 Year
  Sex: Female

DRUGS (2)
  1. DIPRIVAN [Suspect]
     Indication: ANAESTHESIA
     Dosage: 80 MG ONCE IV
     Route: 042
     Dates: start: 20041130, end: 20041130
  2. ULTIVA [Suspect]
     Indication: ANAESTHESIA
     Dosage: 0.3 MG ONCE
     Dates: start: 20041130, end: 20041130

REACTIONS (7)
  - ANAESTHETIC COMPLICATION [None]
  - APNOEA [None]
  - HYPERSENSITIVITY [None]
  - HYPOTENSION [None]
  - INJECTION SITE PAIN [None]
  - PALLOR [None]
  - RESPIRATION ABNORMAL [None]
